FAERS Safety Report 21471958 (Version 1)
Quarter: 2022Q4

REPORT INFORMATION
  Report Type: Spontaneous
  Country: US (occurrence: US)
  Receive Date: 20221018
  Receipt Date: 20221018
  Transmission Date: 20230113
  Serious: No
  Sender: FDA-Public Use
  Company Number: US-BAYER-2022A141453

PATIENT
  Age: 58 Year
  Sex: Female

DRUGS (1)
  1. ESTRADIOL [Suspect]
     Active Substance: ESTRADIOL
     Dosage: 0.05 MG (MILLIGRAM) ONE SINGLE DOSE
     Route: 062
     Dates: start: 202210

REACTIONS (1)
  - Product dose omission issue [None]

NARRATIVE: CASE EVENT DATE: 20221001
